FAERS Safety Report 25651495 (Version 1)
Quarter: 2025Q3

REPORT INFORMATION
  Report Type: Spontaneous
  Country: US (occurrence: US)
  Receive Date: 20250806
  Receipt Date: 20250806
  Transmission Date: 20251021
  Serious: Yes (Life-Threatening, Hospitalization)
  Sender: AMGEN
  Company Number: US-AMGEN-USASP2025151922

PATIENT
  Age: 8 Decade
  Sex: Female

DRUGS (5)
  1. PREDNISONE [Suspect]
     Active Substance: PREDNISONE
     Indication: Rheumatoid arthritis
     Dosage: 15 MILLIGRAM, QD
     Route: 065
  2. PREDNISONE [Suspect]
     Active Substance: PREDNISONE
     Dosage: 40 MILLIGRAM, QD
     Route: 065
  3. ADALIMUMAB [Suspect]
     Active Substance: ADALIMUMAB
     Indication: Rheumatoid arthritis
     Route: 065
  4. FOLIC ACID [Concomitant]
     Active Substance: FOLIC ACID
  5. TOFACITINIB [Concomitant]
     Active Substance: TOFACITINIB

REACTIONS (34)
  - Embolism venous [Unknown]
  - Rheumatoid vasculitis [Unknown]
  - Aneurysm [Unknown]
  - Oedema peripheral [Unknown]
  - Pulmonary embolism [Unknown]
  - Hand deformity [Unknown]
  - Haemoperitoneum [Unknown]
  - Skin ulcer [Unknown]
  - Deep vein thrombosis [Unknown]
  - Joint dislocation [Unknown]
  - Mononeuropathy multiplex [Unknown]
  - Haemodynamic instability [Unknown]
  - Shock haemorrhagic [Unknown]
  - Vasculitis [Unknown]
  - Arthralgia [Unknown]
  - Joint stiffness [Unknown]
  - Dyspnoea exertional [Unknown]
  - Asthenia [Unknown]
  - Paraesthesia [Unknown]
  - Hypoaesthesia [Unknown]
  - Weight decreased [Unknown]
  - Tenderness [Unknown]
  - Skin mass [Unknown]
  - Palpable purpura [Unknown]
  - Sensory loss [Unknown]
  - Anaemia [Unknown]
  - Hyponatraemia [Unknown]
  - C-reactive protein increased [Unknown]
  - Red blood cell sedimentation rate increased [Unknown]
  - Joint deformity [Unknown]
  - Haemoglobin decreased [Unknown]
  - Haematocrit decreased [Unknown]
  - Haematoma [Unknown]
  - Haemorrhage [Unknown]
